FAERS Safety Report 16000886 (Version 4)
Quarter: 2019Q1

REPORT INFORMATION
  Report Type: Spontaneous
  Country: SK (occurrence: SK)
  Receive Date: 20190225
  Receipt Date: 20190319
  Transmission Date: 20190418
  Serious: Yes (Death, Hospitalization, Other)
  Sender: FDA-Public Use
  Company Number: SK-PFIZER INC-2019077322

PATIENT
  Age: 47 Year
  Sex: Male

DRUGS (11)
  1. BISEPTOL [Suspect]
     Active Substance: SULFAMETHOXAZOLE\TRIMETHOPRIM
     Indication: BACTERIAL INFECTION
     Dosage: UNK
  2. ZARZIO [Suspect]
     Active Substance: FILGRASTIM
     Indication: NECROTISING FASCIITIS
     Dosage: UNK
  3. FLUCONAZOLE. [Suspect]
     Active Substance: FLUCONAZOLE
     Indication: NECROTISING FASCIITIS
     Dosage: UNK
     Dates: start: 20170419
  4. FLUCONAZOLE. [Suspect]
     Active Substance: FLUCONAZOLE
     Indication: BACTERIAL INFECTION
     Dosage: UNK
  5. METRONIDAZOLE. [Suspect]
     Active Substance: METRONIDAZOLE
     Indication: NECROTISING FASCIITIS
     Dosage: UNK
  6. VANCOMYCIN [Suspect]
     Active Substance: VANCOMYCIN
     Indication: ANTIBIOTIC THERAPY
     Dosage: UNK
  7. AMIKACIN. [Suspect]
     Active Substance: AMIKACIN
     Indication: NECROTISING FASCIITIS
     Dosage: UNK
  8. MEROPENEM. [Suspect]
     Active Substance: MEROPENEM
     Indication: NECROTISING FASCIITIS
     Dosage: UNK
  9. CLINDAMYCIN PALMITATE HCL [Suspect]
     Active Substance: CLINDAMYCIN PALMITATE HYDROCHLORIDE
     Dosage: UNK
  10. LINEZOLID. [Suspect]
     Active Substance: LINEZOLID
     Indication: CELLULITIS
     Dosage: UNK
  11. COLIMYCINE [COLISTIMETHATE SODIUM] [Suspect]
     Active Substance: COLISTIMETHATE SODIUM
     Indication: BACTERIAL INFECTION
     Dosage: UNK

REACTIONS (9)
  - Sputum purulent [Unknown]
  - Clostridium test positive [Unknown]
  - Inflammation [Unknown]
  - Organ failure [Unknown]
  - Septic shock [Unknown]
  - Enterococcal infection [Unknown]
  - Klebsiella infection [Unknown]
  - Pseudomonas infection [Unknown]
  - Anaemia [Unknown]

NARRATIVE: CASE EVENT DATE: 20161010
